FAERS Safety Report 7192525-3 (Version None)
Quarter: 2010Q4

REPORT INFORMATION
  Report Type: 
  Country: None (occurrence: None)
  Receive Date: 20101223
  Receipt Date: 20100825
  Transmission Date: 20110411
  Serious: No
  Sender: FDA-Public Use
  Company Number: US-AMGEN-KDL433891

PATIENT

DRUGS (4)
  1. ENBREL [Suspect]
     Indication: PRODUCT USED FOR UNKNOWN INDICATION
     Dosage: 50 MG, QWK
     Route: 058
  2. LEVOTHYROXINE SODIUM [Concomitant]
     Dosage: 75 MG, UNK
  3. MULTI-VITAMINS [Concomitant]
     Dosage: UNK UNK, UNK
  4. FISH OIL [Concomitant]
     Dosage: UNK UNK, UNK

REACTIONS (1)
  - NASOPHARYNGITIS [None]
